FAERS Safety Report 6314074-4 (Version None)
Quarter: 2009Q3

REPORT INFORMATION
  Report Type: 
  Country: None (occurrence: None)
  Receive Date: 20090818
  Receipt Date: 20090812
  Transmission Date: 20100115
  Serious: Yes (Other)
  Sender: FDA-Public Use
  Company Number: US-JNJCH-2009021962

PATIENT
  Age: 45 Year
  Sex: Female
  Weight: 68 kg

DRUGS (1)
  1. ROLAIDS EXTRA STRENGTH TROPICAL PUNCH [Suspect]
     Indication: MINERAL SUPPLEMENTATION
     Dosage: TEXT:ONE TABLET ONCE
     Route: 048
     Dates: start: 20090812, end: 20090812

REACTIONS (3)
  - EYE SWELLING [None]
  - OFF LABEL USE [None]
  - REACTION TO DRUG EXCIPIENTS [None]
